FAERS Safety Report 11937806 (Version 1)
Quarter: 2016Q1

REPORT INFORMATION
  Report Type: Spontaneous
  Country: CN (occurrence: CN)
  Receive Date: 20160122
  Receipt Date: 20160122
  Transmission Date: 20160526
  Serious: Yes (Hospitalization, Other)
  Sender: FDA-Public Use
  Company Number: CN-PFIZER INC-2016027055

PATIENT
  Age: 80 Year
  Sex: Male
  Weight: 45 kg

DRUGS (2)
  1. VFEND [Suspect]
     Active Substance: VORICONAZOLE
     Indication: BRONCHOPULMONARY ASPERGILLOSIS
     Dosage: 0.2 G, 2X/DAY
     Route: 048
     Dates: start: 20150724, end: 20150812
  2. VFEND [Suspect]
     Active Substance: VORICONAZOLE
     Dosage: 0.2 G, DAILY
     Route: 048
     Dates: start: 20150812, end: 20150814

REACTIONS (5)
  - Muscle twitching [Recovered/Resolved]
  - Restlessness [Recovered/Resolved]
  - Poor quality sleep [Recovered/Resolved]
  - Irritability [Recovered/Resolved]
  - Tic [Recovered/Resolved]

NARRATIVE: CASE EVENT DATE: 20150812
